FAERS Safety Report 4516786-1 (Version None)
Quarter: 2004Q4

REPORT INFORMATION
  Report Type: 
  Country: None (occurrence: None)
  Receive Date: 20041005
  Receipt Date: 20041005
  Transmission Date: 20050328
  Serious: Yes (Hospitalization, Other)
  Sender: FDA-Public Use
  Company Number: ENTC2004-0114

PATIENT
  Age: 74 Year
  Sex: Female

DRUGS (1)
  1. STALEVO 100 [Suspect]
     Indication: PARKINSON'S DISEASE
     Dosage: 100 MG/ 25 MG/ 200 MG THREE TIMES A DAY, ORAL
     Route: 048

REACTIONS (3)
  - ASTHENIA [None]
  - HYPOTENSION [None]
  - URINARY TRACT INFECTION [None]
